FAERS Safety Report 13597957 (Version 2)
Quarter: 2017Q2

REPORT INFORMATION
  Report Type: Spontaneous
  Country: FR (occurrence: FR)
  Receive Date: 20170531
  Receipt Date: 20170609
  Transmission Date: 20170830
  Serious: Yes (Other)
  Sender: FDA-Public Use
  Company Number: FR-PFIZER INC-2017228239

PATIENT
  Age: 90 Year
  Sex: Female

DRUGS (16)
  1. FLECAINE [Concomitant]
     Active Substance: FLECAINIDE
  2. LEDERFOLINE [Suspect]
     Active Substance: LEUCOVORIN CALCIUM
     Dosage: 25 MG, 1X/DAY
     Route: 048
     Dates: start: 20170224, end: 20170228
  3. BACTRIM [Suspect]
     Active Substance: SULFAMETHOXAZOLE\TRIMETHOPRIM
     Dosage: 2 DF, 1X/DAY
     Route: 048
     Dates: start: 20170224, end: 2017
  4. AMLODIPINE [Concomitant]
     Active Substance: AMLODIPINE BESYLATE
  5. FOSINOPRIL [Concomitant]
     Active Substance: FOSINOPRIL
  6. PANTOPRAZOLE [Concomitant]
     Active Substance: PANTOPRAZOLE
  7. MABTHERA [Suspect]
     Active Substance: RITUXIMAB
     Indication: HAEMATOLOGICAL MALIGNANCY
     Dosage: 100 MG, MONTHLY
     Route: 042
     Dates: start: 20170224
  8. CHLORAMINOPHENE [Suspect]
     Active Substance: CHLORAMBUCIL
     Dosage: 2 MG, 1X/DAY
     Route: 048
     Dates: start: 20170323, end: 2017
  9. LOVENOX [Suspect]
     Active Substance: ENOXAPARIN SODIUM
     Dosage: 1 DF, 1X/DAY (6000 IU ANTI-XA / 0.6 ML)
     Route: 058
     Dates: start: 20170224, end: 2017
  10. FOLINORAL [Suspect]
     Active Substance: LEUCOVORIN CALCIUM
     Dosage: UNK
     Dates: start: 20170228
  11. RECOMBINANT HUMAN ERYTHROPOIETIN [Suspect]
     Active Substance: ERYTHROPOIETIN
     Dosage: UNK
     Dates: start: 20170224
  12. ZELITREX [Suspect]
     Active Substance: VALACYCLOVIR HYDROCHLORIDE
     Dosage: 500 MG, 1X/DAY (1DF ONCE A DAY)
     Route: 048
     Dates: start: 20170224
  13. ESIDREX [Concomitant]
     Active Substance: HYDROCHLOROTHIAZIDE
  14. SOLU-MEDROL [Suspect]
     Active Substance: METHYLPREDNISOLONE SODIUM SUCCINATE
     Dosage: UNK
     Dates: start: 20170224
  15. MABTHERA [Suspect]
     Active Substance: RITUXIMAB
     Dosage: 100 MG, MONTHLY
     Route: 042
     Dates: start: 20170323, end: 2017
  16. CHLORAMINOPHENE [Suspect]
     Active Substance: CHLORAMBUCIL
     Indication: HAEMATOLOGICAL MALIGNANCY
     Dosage: 2 MG, 1X/DAY
     Route: 048
     Dates: start: 20170224

REACTIONS (2)
  - Toxic skin eruption [Recovering/Resolving]
  - Cheilitis [Recovering/Resolving]

NARRATIVE: CASE EVENT DATE: 201703
